FAERS Safety Report 10401688 (Version 1)
Quarter: 2014Q3

REPORT INFORMATION
  Report Type: Spontaneous
  Country: IT (occurrence: IT)
  Receive Date: 20140822
  Receipt Date: 20140822
  Transmission Date: 20150326
  Serious: Yes (Other)
  Sender: FDA-Public Use
  Company Number: IT-TEVA-502029ISR

PATIENT
  Age: 85 Year
  Sex: Female

DRUGS (4)
  1. MIRTAZAPINE. [Suspect]
     Active Substance: MIRTAZAPINE
     Indication: INTENTIONAL SELF-INJURY
     Dosage: 1 DF TOTAL
     Route: 048
     Dates: start: 20140808, end: 20140808
  2. LENDORMIN - 0,25 MG COMPRESSE - BOEHRINGER INGELHEIM ITALIA S.P.A . [Suspect]
     Active Substance: BROTIZOLAM
     Indication: INTENTIONAL SELF-INJURY
     Dosage: 1 DF TOTAL
     Route: 048
     Dates: start: 20140808, end: 20140808
  3. STILNOX - 10 MG COMPRESSE RIVESTITE CON FILM - SANOFI-AVENTIS S.P.A. [Suspect]
     Active Substance: ZOLPIDEM TARTRATE
     Indication: INTENTIONAL SELF-INJURY
     Dosage: 2 DF TOTAL
     Route: 048
     Dates: start: 20140808, end: 20140808
  4. LORAZEPAM. [Suspect]
     Active Substance: LORAZEPAM
     Indication: INTENTIONAL SELF-INJURY
     Dosage: 1 DF TOTAL
     Route: 048
     Dates: start: 20140808, end: 20140808

REACTIONS (3)
  - Sopor [Recovering/Resolving]
  - Drug abuse [Recovering/Resolving]
  - Intentional self-injury [Recovering/Resolving]

NARRATIVE: CASE EVENT DATE: 20140809
